FAERS Safety Report 8473787-9 (Version None)
Quarter: 2012Q2

REPORT INFORMATION
  Report Type: 
  Country: None (occurrence: None)
  Receive Date: 20120628
  Receipt Date: 20111215
  Transmission Date: 20120825
  Serious: Yes (Hospitalization)
  Sender: FDA-Public Use
  Company Number: US-MYLANLABS-2011S1023416

PATIENT
  Age: 43 Year
  Sex: Female
  Weight: 105.24 kg

DRUGS (14)
  1. LIDODERM [Concomitant]
     Dates: start: 20111022, end: 20111026
  2. MELATONIN [Concomitant]
  3. LEVOTHYROXINE [Concomitant]
  4. COMPAZINE [Concomitant]
     Dates: start: 20111123, end: 20111130
  5. OCEAN NASAL [Concomitant]
     Route: 045
     Dates: start: 20111101, end: 20111108
  6. CLOZAPINE [Suspect]
     Dates: start: 20110101, end: 20111128
  7. MIRALAX /00754501/ [Concomitant]
  8. GUAIFENESIN [Concomitant]
     Dates: start: 20111113, end: 20111116
  9. DEPAKOTE [Concomitant]
  10. ZYPREXA [Concomitant]
     Dates: start: 20111018, end: 20111021
  11. VITAMIN D [Concomitant]
  12. FOLIC ACID [Concomitant]
  13. CLOZAPINE [Suspect]
     Indication: SCHIZOAFFECTIVE DISORDER BIPOLAR TYPE
     Dates: start: 20111018, end: 20110101
  14. PRILOSEC [Concomitant]
     Dates: start: 20111122, end: 20111128

REACTIONS (6)
  - PLATELET COUNT DECREASED [None]
  - DIARRHOEA [None]
  - VOMITING [None]
  - PYREXIA [None]
  - BAND NEUTROPHIL COUNT INCREASED [None]
  - NAUSEA [None]
